FAERS Safety Report 4934825-0 (Version None)
Quarter: 2006Q1

REPORT INFORMATION
  Report Type: 
  Country: None (occurrence: None)
  Receive Date: 20060307
  Receipt Date: 20050301
  Transmission Date: 20060701
  Serious: Yes (Death)
  Sender: FDA-Public Use
  Company Number: GB-MERCK-0503GBR00031

PATIENT
  Age: 64 Year
  Sex: Male
  Weight: 101 kg

DRUGS (19)
  1. VIOXX [Suspect]
     Indication: ARTHRITIS
     Route: 048
     Dates: start: 20030403, end: 20041001
  2. CELECOXIB [Suspect]
     Indication: ARTHRITIS
     Route: 048
     Dates: start: 20041001, end: 20041223
  3. DOXAZOSIN MESYLATE [Concomitant]
     Indication: HYPERTENSION
     Route: 048
     Dates: start: 20041206
  4. FELODIPINE [Concomitant]
     Indication: HYPERTENSION
     Route: 048
     Dates: start: 19990510
  5. FOLIC ACID [Concomitant]
     Route: 048
     Dates: start: 20040212
  6. METHOTREXATE [Concomitant]
     Route: 048
     Dates: start: 20040212
  7. FLUVASTATIN SODIUM [Concomitant]
     Indication: BLOOD CHOLESTEROL INCREASED
     Route: 048
  8. LISINOPRIL [Concomitant]
     Indication: HYPERTENSION
     Route: 048
  9. ATENOLOL [Concomitant]
     Route: 048
  10. AMLODIPINE BESYLATE [Concomitant]
     Route: 048
  11. ACETAMINOPHEN AND PROPOXYPHENE HYDROCHLORIDE [Concomitant]
     Route: 048
  12. DICLOFENAC SODIUM [Concomitant]
     Route: 048
  13. TRAMADOL HYDROCHLORIDE [Concomitant]
     Indication: ARTHRALGIA
     Route: 048
  14. DEXAMETHASONE [Concomitant]
     Route: 048
  15. DIHYDROCODEINE [Concomitant]
     Route: 048
  16. ACETAMINOPHEN AND CODEINE PHOSPHATE [Concomitant]
     Route: 048
  17. IBUPROFEN [Concomitant]
     Route: 061
  18. BENDROFLUMETHIAZIDE [Concomitant]
     Route: 048
  19. RABEPRAZOLE SODIUM [Concomitant]
     Route: 048

REACTIONS (2)
  - ACUTE MYOCARDIAL INFARCTION [None]
  - BLOOD PRESSURE DECREASED [None]
